FAERS Safety Report 6673082-4 (Version None)
Quarter: 2010Q2

REPORT INFORMATION
  Report Type: 
  Country: None (occurrence: None)
  Receive Date: 20100408
  Receipt Date: 20100402
  Transmission Date: 20101027
  Serious: Yes (Hospitalization, Other)
  Sender: FDA-Public Use
  Company Number: PHHO2010JP04342

PATIENT
  Sex: Male
  Weight: 60 kg

DRUGS (11)
  1. COMPARATOR ENALAPRIL [Suspect]
     Dosage: 20 MG, QD
     Route: 048
     Dates: start: 20100303, end: 20100325
  2. ALISKIREN [Suspect]
     Indication: CARDIAC FAILURE
     Dosage: UNK
     Route: 048
  3. BLINDED ALISKIREN ALI+TAB+CF [Suspect]
     Indication: CARDIAC FAILURE
     Dosage: NO TREATMENT
     Route: 048
  4. BLINDED ENALAPRIL COMP-ENA+ [Suspect]
     Indication: CARDIAC FAILURE
     Dosage: NO TREATMENT
     Route: 048
  5. BLINDED NO TREATMENT RECEIVED NOMED [Suspect]
     Indication: CARDIAC FAILURE
     Dosage: NO TREATMENT
     Route: 048
  6. DIGOSIN [Suspect]
     Indication: ATRIAL FIBRILLATION
     Dosage: UNK
     Dates: start: 20100203, end: 20100303
  7. LASIX [Concomitant]
     Indication: CARDIAC FAILURE CHRONIC
     Dosage: UNK
     Dates: start: 20100108
  8. ALDACTONE [Concomitant]
     Indication: CARDIAC FAILURE CHRONIC
     Dosage: UNK
     Dates: start: 20100108
  9. CARVEDILOL [Concomitant]
     Indication: CARDIAC FAILURE CHRONIC
     Dosage: UNK
     Dates: start: 20100108
  10. WARFARIN SODIUM [Concomitant]
     Indication: ATRIAL FIBRILLATION
     Dosage: UNK
     Dates: start: 20100108, end: 20100314
  11. ALLOPURINOL [Concomitant]
     Indication: HYPERURICAEMIA
     Dosage: UNK
     Dates: start: 20100315

REACTIONS (8)
  - ATRIAL FIBRILLATION [None]
  - BLOOD POTASSIUM INCREASED [None]
  - CARDIAC FAILURE [None]
  - DECREASED APPETITE [None]
  - HYPOPHAGIA [None]
  - HYPOTENSION [None]
  - MALAISE [None]
  - URINE OUTPUT DECREASED [None]
